FAERS Safety Report 7031974-0 (Version None)
Quarter: 2010Q4

REPORT INFORMATION
  Report Type: 
  Country: None (occurrence: None)
  Receive Date: 20101007
  Receipt Date: 20101004
  Transmission Date: 20110411
  Serious: Yes (Hospitalization)
  Sender: FDA-Public Use
  Company Number: EG-BAYER-201029043GPV

PATIENT
  Age: 47 Year
  Sex: Male
  Weight: 64 kg

DRUGS (6)
  1. SORAFENIB [Suspect]
     Indication: HEPATIC NEOPLASM MALIGNANT
     Dosage: TOTAL DAILY DOSE: 800 MG
     Route: 048
     Dates: start: 20100505, end: 20100515
  2. SORAFENIB [Suspect]
     Route: 048
     Dates: start: 20100603
  3. LINIFANIB (STUDY DRUG NOT GIVEN) [Suspect]
     Indication: HEPATIC NEOPLASM MALIGNANT
     Dosage: NOT GIVEN
  4. NALBUPHINE HYDROCHOLORIDE [Concomitant]
     Indication: ABDOMINAL PAIN
     Dosage: TOTAL DAILY DOSE: 40 MG
     Dates: start: 20100512, end: 20100515
  5. BUSCOPAN [Concomitant]
     Indication: ABDOMINAL PAIN
     Dosage: TOTAL DAILY DOSE: 40 MG
     Route: 048
     Dates: start: 20100512, end: 20100515
  6. DICLOFENAC SODIUM [Concomitant]
     Indication: ABDOMINAL PAIN
     Dosage: TOTAL DAILY DOSE: 150 MG
     Dates: start: 20100512, end: 20100515

REACTIONS (6)
  - ALTERED STATE OF CONSCIOUSNESS [None]
  - CONFUSIONAL STATE [None]
  - JAUNDICE [None]
  - OESOPHAGEAL VARICES HAEMORRHAGE [None]
  - PALLOR [None]
  - VARICES OESOPHAGEAL [None]
